FAERS Safety Report 9534292 (Version 4)
Quarter: 2015Q2

REPORT INFORMATION
  Report Type: Spontaneous
  Country: GB (occurrence: GB)
  Receive Date: 20130918
  Receipt Date: 20150429
  Transmission Date: 20150821
  Serious: Yes (Death, Hospitalization, Other)
  Sender: FDA-Public Use
  Company Number: GB-TEVA-432039ISR

PATIENT
  Age: 69 Year
  Sex: Female
  Weight: 120 kg

DRUGS (18)
  1. WARFARIN [Concomitant]
     Active Substance: WARFARIN
  2. SIMVASTATIN. [Concomitant]
     Active Substance: SIMVASTATIN
  3. RABEPRAZOLE [Concomitant]
     Active Substance: RABEPRAZOLE
  4. CETRIZIN [Concomitant]
  5. FERROUS FUMARATE [Concomitant]
     Active Substance: FERROUS FUMARATE
  6. FOLIC ACID. [Concomitant]
     Active Substance: FOLIC ACID
  7. SERTRALINE [Suspect]
     Active Substance: SERTRALINE HYDROCHLORIDE
     Indication: DEPRESSION
     Dosage: 50 MILLIGRAM DAILY;
     Route: 048
     Dates: start: 20130802, end: 20130818
  8. PARACETAMOL [Concomitant]
     Active Substance: ACETAMINOPHEN
  9. DIHYDROCODEINE [Concomitant]
     Active Substance: DIHYDROCODEINE
  10. LACTULOSE. [Concomitant]
     Active Substance: LACTULOSE
  11. MOVELA [Concomitant]
  12. DOCUSATE [Concomitant]
     Active Substance: DOCUSATE
  13. SENNA [Concomitant]
     Active Substance: SENNA LEAF\SENNOSIDES\SENNOSIDES A AND B
  14. BISOPROLOL [Concomitant]
     Active Substance: BISOPROLOL
  15. DIGOXIN. [Concomitant]
     Active Substance: DIGOXIN
  16. METHOTREXATE [Concomitant]
     Active Substance: METHOTREXATE
     Indication: RHEUMATOID ARTHRITIS
  17. PREDNISOLONE. [Concomitant]
     Active Substance: PREDNISOLONE
     Indication: RHEUMATOID ARTHRITIS
  18. LEVOTHYROXINE [Concomitant]
     Active Substance: LEVOTHYROXINE

REACTIONS (9)
  - Multi-organ failure [Fatal]
  - Sepsis [Unknown]
  - Cardiovascular disorder [Unknown]
  - Toxic epidermal necrolysis [Fatal]
  - Lower respiratory tract infection [Unknown]
  - Rash [Unknown]
  - Dehydration [Unknown]
  - Atrial fibrillation [Unknown]
  - Stevens-Johnson syndrome [Not Recovered/Not Resolved]

NARRATIVE: CASE EVENT DATE: 20130816
